FAERS Safety Report 6611302-2 (Version None)
Quarter: 2010Q1

REPORT INFORMATION
  Report Type: 
  Country: None (occurrence: None)
  Receive Date: 20100222
  Receipt Date: 20100215
  Transmission Date: 20100710
  Serious: Yes (Death, Hospitalization)
  Sender: FDA-Public Use
  Company Number: 2010SP008746

PATIENT
  Sex: Male
  Weight: 76 kg

DRUGS (3)
  1. TEMODAL [Suspect]
     Indication: GLIOBLASTOMA MULTIFORME
     Dosage: 140 MG;QD
     Dates: start: 20091207, end: 20100117
  2. DEXAMETHASONE [Concomitant]
  3. PANTAZOL [Concomitant]

REACTIONS (8)
  - ASTHENIA [None]
  - BILIARY DILATATION [None]
  - DECREASED APPETITE [None]
  - GALLBLADDER OEDEMA [None]
  - HEPATIC FAILURE [None]
  - NAUSEA [None]
  - PLATELET COUNT DECREASED [None]
  - PNEUMONIA [None]
